FAERS Safety Report 10761104 (Version 2)
Quarter: 2015Q1

REPORT INFORMATION
  Report Type: Spontaneous
  Country: JP (occurrence: JP)
  Receive Date: 20150204
  Receipt Date: 20150316
  Transmission Date: 20150721
  Serious: Yes (Death)
  Sender: FDA-Public Use
  Company Number: JP-MALLINCKRODT-T201500996

PATIENT
  Age: 53 Year
  Sex: Male
  Weight: 46 kg

DRUGS (16)
  1. MYSLEE [Concomitant]
     Active Substance: ZOLPIDEM TARTRATE
     Dosage: 5MG
     Route: 048
     Dates: end: 20141012
  2. GLYCEREB [Concomitant]
     Dosage: 200 ML
     Route: 051
     Dates: start: 20141014, end: 20141019
  3. TRYPTANOL [Concomitant]
     Active Substance: AMITRIPTYLINE
     Dosage: 10MG,
     Route: 048
     Dates: start: 20140827, end: 20141020
  4. CELECOX [Concomitant]
     Active Substance: CELECOXIB
     Dosage: 400 MG,
     Route: 048
     Dates: start: 20140813, end: 20141020
  5. NAUZELIN [Concomitant]
     Active Substance: DOMPERIDONE
     Dosage: 60MG,
     Route: 054
     Dates: start: 20140926, end: 20141012
  6. ENSURE [Concomitant]
     Active Substance: AMINO ACIDS\DEXTROSE\ELECTROLYTES NOS\SOYBEAN OIL\VITAMINS
     Dosage: 250 ML
     Route: 048
     Dates: start: 20140930, end: 20141010
  7. VITAMEDIN [Concomitant]
     Active Substance: CYANOCOBALAMIN\PYRIDOXINE HYDROCHLORIDE\THIAMINE
     Indication: PROPHYLAXIS
     Dosage: 3 DF
     Route: 048
     Dates: start: 20140822, end: 20141010
  8. NEXIUM [Concomitant]
     Active Substance: ESOMEPRAZOLE MAGNESIUM
     Dosage: 20 MG,
     Route: 048
     Dates: start: 20140827, end: 20141020
  9. OXINORM [Concomitant]
     Active Substance: OXYCODONE HYDROCHLORIDE
     Dosage: 10MG, P.R.N.
     Route: 048
     Dates: start: 20140808
  10. URSO [Concomitant]
     Active Substance: URSODIOL
     Dosage: 300MG,
     Route: 048
     Dates: start: 20140822, end: 20141012
  11. AMINOTRIPA 1 [Concomitant]
     Dosage: 1 DF
     Route: 051
     Dates: start: 20141009, end: 20141019
  12. ELEJECT [Concomitant]
     Dosage: 1 DF
     Route: 051
     Dates: start: 20141009, end: 20141019
  13. METHADONE [Suspect]
     Active Substance: METHADONE HYDROCHLORIDE
     Dosage: 5 MG, (10 MG)
     Route: 048
     Dates: start: 20141011, end: 20141015
  14. MAGMITT [Concomitant]
     Active Substance: MAGNESIUM OXIDE
     Dosage: 990MG,
     Route: 048
     Dates: start: 20140805, end: 20141020
  15. ALEVIATIN [Concomitant]
     Active Substance: PHENYTOIN SODIUM
     Dosage: 0.5 DF
     Route: 051
     Dates: start: 20141014, end: 20141019
  16. METHADONE [Suspect]
     Active Substance: METHADONE HYDROCHLORIDE
     Indication: CANCER PAIN
     Dosage: 5 MG, (15 MG)
     Route: 048
     Dates: start: 20141009, end: 20141010

REACTIONS (2)
  - Somnolence [Not Recovered/Not Resolved]
  - Lung neoplasm malignant [Fatal]

NARRATIVE: CASE EVENT DATE: 20141009
